FAERS Safety Report 13817516 (Version 2)
Quarter: 2017Q3

REPORT INFORMATION
  Report Type: Spontaneous
  Country: US (occurrence: US)
  Receive Date: 20170731
  Receipt Date: 20170816
  Transmission Date: 20171127
  Serious: Yes (Hospitalization, Other)
  Sender: FDA-Public Use
  Company Number: US-TEVA-792566USA

PATIENT
  Age: 51 Year
  Sex: Male

DRUGS (2)
  1. AMOXICILLIN. [Suspect]
     Active Substance: AMOXICILLIN
     Indication: MIDDLE EAR EFFUSION
     Dosage: 1750 MILLIGRAM DAILY;
     Route: 048
     Dates: start: 20170715, end: 20170719
  2. LISINOPRIL. [Concomitant]
     Active Substance: LISINOPRIL
     Indication: MYOCARDIAL INFARCTION

REACTIONS (37)
  - Decreased appetite [Recovered/Resolved]
  - Discomfort [Recovered/Resolved]
  - Agitation [Recovered/Resolved]
  - Dry mouth [Recovered/Resolved]
  - Swelling face [Recovered/Resolved]
  - Eye disorder [Recovered/Resolved]
  - Dyspnoea [Recovered/Resolved]
  - Memory impairment [Recovered/Resolved]
  - Mental disorder [Recovered/Resolved]
  - Eye irritation [Recovered/Resolved]
  - Ear haemorrhage [Recovered/Resolved]
  - Restlessness [Recovered/Resolved]
  - Tremor [Recovered/Resolved]
  - Movement disorder [Recovered/Resolved]
  - Blood pressure abnormal [Recovered/Resolved]
  - Eye pain [Recovered/Resolved]
  - Dysgeusia [Recovered/Resolved]
  - Depression [Recovered/Resolved]
  - Haemorrhage [Recovered/Resolved]
  - Anxiety [Recovered/Resolved]
  - Chills [Recovered/Resolved]
  - Chromaturia [Recovered/Resolved]
  - Diarrhoea [Recovered/Resolved]
  - Dizziness [Recovered/Resolved]
  - Ocular hyperaemia [Recovered/Resolved]
  - Abnormal behaviour [Recovered/Resolved]
  - Hallucination, visual [Recovered/Resolved]
  - Paranoia [Recovered/Resolved]
  - Headache [Recovered/Resolved]
  - Irritability [Recovered/Resolved]
  - Insomnia [Recovered/Resolved]
  - Swelling [Recovered/Resolved]
  - Confusional state [Recovered/Resolved]
  - Asthenia [Recovered/Resolved]
  - Emotional disorder [Recovered/Resolved]
  - Psychomotor hyperactivity [Recovered/Resolved]
  - Musculoskeletal stiffness [Recovered/Resolved]

NARRATIVE: CASE EVENT DATE: 20170717
